FAERS Safety Report 5084407-8 (Version None)
Quarter: 2006Q3

REPORT INFORMATION
  Report Type: 
  Country: None (occurrence: None)
  Receive Date: 20060821
  Receipt Date: 20050714
  Transmission Date: 20061208
  Serious: Yes (Disabling)
  Sender: FDA-Public Use
  Company Number: US-GLAXOSMITHKLINE-A0566537A

PATIENT
  Age: 37 Year
  Sex: Female
  Weight: 82.7 kg

DRUGS (4)
  1. PAXIL [Suspect]
     Route: 048
     Dates: start: 20010201, end: 20010901
  2. VICODIN [Concomitant]
  3. NORFLEX [Concomitant]
  4. FLEXERIL [Concomitant]

REACTIONS (14)
  - APPETITE DISORDER [None]
  - DEPRESSION [None]
  - DISTURBANCE IN ATTENTION [None]
  - DIZZINESS [None]
  - DRUG WITHDRAWAL SYNDROME [None]
  - EAR DISCOMFORT [None]
  - EAR PAIN [None]
  - HYPOACUSIS [None]
  - MENIERE'S DISEASE [None]
  - MOOD SWINGS [None]
  - PARAESTHESIA [None]
  - SUICIDAL IDEATION [None]
  - TINNITUS [None]
  - VERTIGO [None]
